FAERS Safety Report 21694964 (Version 1)
Quarter: 2022Q4

REPORT INFORMATION
  Report Type: Spontaneous
  Country: US (occurrence: None)
  Receive Date: 20221207
  Receipt Date: 20221207
  Transmission Date: 20230112
  Serious: Yes (unspecified)
  Sender: FDA-Public Use
  Company Number: None

PATIENT
  Age: 76 Year
  Sex: Male

DRUGS (15)
  1. PRALUENT [Suspect]
     Active Substance: ALIROCUMAB
     Indication: Hyperlipidaemia
     Dosage: FREQUENCY : EVERY OTHER WEEK;?
     Route: 058
  2. CARVEDILOL [Concomitant]
     Active Substance: CARVEDILOL
  3. VITAMIN C [Concomitant]
     Active Substance: ASCORBIC ACID
  4. LEVOTHYROXINE [Concomitant]
     Active Substance: LEVOTHYROXINE
  5. VITAMIN D3 [Concomitant]
     Active Substance: CHOLECALCIFEROL
  6. CLOPIDOGREL [Concomitant]
     Active Substance: CLOPIDOGREL BISULFATE
  7. OMEGA-3 FATTY ACIDS [Concomitant]
     Active Substance: OMEGA-3 FATTY ACIDS
  8. TELMISARTAN [Concomitant]
     Active Substance: TELMISARTAN
  9. PANTOPRAZOLE [Concomitant]
     Active Substance: PANTOPRAZOLE
  10. NITROSTAT [Concomitant]
     Active Substance: NITROGLYCERIN
  11. FUROSEMIDE [Concomitant]
     Active Substance: FUROSEMIDE
  12. ELIQUIS [Concomitant]
     Active Substance: APIXABAN
  13. POTASSIUM [Concomitant]
     Active Substance: POTASSIUM
  14. VITAMIN B COMPLEX [Concomitant]
     Active Substance: CYANOCOBALAMIN\DEXPANTHENOL\NIACINAMIDE\PYRIDOXINE HYDROCHLORIDE\RIBOFLAVIN 5^-PHOSPHATE SODIUM\THIA
  15. VITAMIN C [Concomitant]
     Active Substance: ASCORBIC ACID

REACTIONS (2)
  - Injection site mass [None]
  - Wrong technique in product usage process [None]

NARRATIVE: CASE EVENT DATE: 20221207
